FAERS Safety Report 4711828-2 (Version None)
Quarter: 2005Q3

REPORT INFORMATION
  Report Type: 
  Country: None (occurrence: None)
  Receive Date: 20050711
  Receipt Date: 20050610
  Transmission Date: 20060218
  Serious: Yes (Hospitalization)
  Sender: FDA-Public Use
  Company Number: C05-T-117

PATIENT
  Age: 47 Year
  Sex: Female

DRUGS (4)
  1. PROMETHAZINE HCL [Suspect]
     Indication: NAUSEA
     Dosage: UP TO 4 TABS /DAY PO
     Route: 048
     Dates: start: 20040901, end: 20050601
  2. XANAX [Concomitant]
  3. SOMA [Concomitant]
  4. NEXIUM [Concomitant]

REACTIONS (8)
  - ARTHRALGIA [None]
  - CONFUSIONAL STATE [None]
  - CONVULSION [None]
  - PALPITATIONS [None]
  - RASH [None]
  - SINUS TACHYCARDIA [None]
  - STOMACH DISCOMFORT [None]
  - TINNITUS [None]
